FAERS Safety Report 4407037-7 (Version None)
Quarter: 2004Q3

REPORT INFORMATION
  Report Type: 
  Country: None (occurrence: None)
  Receive Date: 20040715
  Receipt Date: 20040705
  Transmission Date: 20050211
  Serious: Yes (Hospitalization)
  Sender: FDA-Public Use
  Company Number: ES-JNJFOC-20040601141

PATIENT
  Age: 22 Year
  Sex: Male

DRUGS (2)
  1. REMICADE [Suspect]
     Indication: ANKYLOSING SPONDYLITIS
     Dosage: INTRAVENOUS
     Route: 042
     Dates: start: 20030701
  2. LISINOPRIL [Concomitant]

REACTIONS (6)
  - ANKYLOSING SPONDYLITIS [None]
  - ARTHRALGIA [None]
  - CONDITION AGGRAVATED [None]
  - LYMPHOCYTIC INFILTRATION [None]
  - NEPHRITIS INTERSTITIAL [None]
  - RENAL FAILURE [None]
